FAERS Safety Report 24172278 (Version 1)
Quarter: 2024Q3

REPORT INFORMATION
  Report Type: Spontaneous
  Country: JP (occurrence: JP)
  Receive Date: 20240805
  Receipt Date: 20240805
  Transmission Date: 20241016
  Serious: Yes (Hospitalization, Other)
  Sender: AMGEN
  Company Number: JP-TAKEDA-2024TJP011389

PATIENT
  Age: 8 Decade
  Sex: Female

DRUGS (1)
  1. VECTIBIX [Suspect]
     Active Substance: PANITUMUMAB
     Indication: Product used for unknown indication
     Dosage: UNK
     Route: 065

REACTIONS (2)
  - Gastrointestinal stoma necrosis [Recovered/Resolved]
  - Metastasis [Unknown]

NARRATIVE: CASE EVENT DATE: 20240712
